FAERS Safety Report 12405294 (Version 1)
Quarter: 2016Q2

REPORT INFORMATION
  Report Type: Spontaneous
  Country: US (occurrence: US)
  Receive Date: 20160525
  Receipt Date: 20160525
  Transmission Date: 20160815
  Serious: Yes (Hospitalization, Other)
  Sender: FDA-Public Use
  Company Number: US-ASTRAZENECA-2016SE54794

PATIENT
  Age: 27126 Day
  Sex: Female
  Weight: 127.5 kg

DRUGS (20)
  1. EMCYT [Concomitant]
     Active Substance: ESTRAMUSTINE PHOSPHATE SODIUM
  2. RAPAMUNE [Concomitant]
     Active Substance: SIROLIMUS
  3. RAPAMUNE [Concomitant]
     Active Substance: SIROLIMUS
     Route: 048
  4. IBRANCE [Concomitant]
     Active Substance: PALBOCICLIB
  5. SUTENT [Concomitant]
     Active Substance: SUNITINIB MALATE
  6. IBRANCE [Concomitant]
     Active Substance: PALBOCICLIB
  7. ZITHROMAX [Suspect]
     Active Substance: AZITHROMYCIN DIHYDRATE
     Route: 065
  8. VFEND [Concomitant]
     Active Substance: VORICONAZOLE
  9. TOPROL XL [Suspect]
     Active Substance: METOPROLOL SUCCINATE
     Route: 048
  10. XALKORI [Concomitant]
     Active Substance: CRIZOTINIB
  11. RAPAMUNE [Concomitant]
     Active Substance: SIROLIMUS
  12. INLYTA [Concomitant]
     Active Substance: AXITINIB
     Dosage: TWO TIMES A DAY
  13. ELELYSO [Concomitant]
     Active Substance: TALIGLUCERASE ALFA
     Dosage: EVERY WEEK
  14. RAPAMUNE [Concomitant]
     Active Substance: SIROLIMUS
  15. REVATIO [Suspect]
     Active Substance: SILDENAFIL CITRATE
     Route: 048
     Dates: start: 20160401
  16. AROMASIN [Concomitant]
     Active Substance: EXEMESTANE
  17. XALKORI [Concomitant]
     Active Substance: CRIZOTINIB
  18. BOSULIF [Concomitant]
     Active Substance: BOSUTINIB MONOHYDRATE
  19. VFEND [Concomitant]
     Active Substance: VORICONAZOLE
  20. IBRANCE [Concomitant]
     Active Substance: PALBOCICLIB

REACTIONS (14)
  - Idiopathic pulmonary fibrosis [Unknown]
  - Pain [Unknown]
  - Chest pain [Unknown]
  - Chronic obstructive pulmonary disease [Unknown]
  - Blood pressure increased [Unknown]
  - Cough [Unknown]
  - Rosacea [Unknown]
  - Back pain [Unknown]
  - Oedema peripheral [Not Recovered/Not Resolved]
  - Pulmonary hypertension [Unknown]
  - Acute respiratory failure [Unknown]
  - Pain in extremity [Unknown]
  - Abdominal wall haematoma [Unknown]
  - Drug hypersensitivity [Unknown]

NARRATIVE: CASE EVENT DATE: 20130319
